FAERS Safety Report 5079840-4 (Version None)
Quarter: 2006Q3

REPORT INFORMATION
  Report Type: 
  Country: None (occurrence: None)
  Receive Date: 20060808
  Receipt Date: 20060727
  Transmission Date: 20061208
  Serious: Yes (Hospitalization)
  Sender: FDA-Public Use
  Company Number: GXKR2006US04328

PATIENT
  Age: 41 Year
  Sex: Female

DRUGS (2)
  1. PAROXETINE HCL [Suspect]
     Indication: DEPRESSION
     Dosage: 30 MG, QD
  2. LEVOTHYROXINE SODIUM [Concomitant]

REACTIONS (10)
  - AGITATION [None]
  - CEREBRAL INFARCTION [None]
  - CEREBRAL VASOCONSTRICTION [None]
  - DRUG SCREEN POSITIVE [None]
  - HEADACHE [None]
  - HYPOAESTHESIA [None]
  - MUSCULAR WEAKNESS [None]
  - NUCLEAR MAGNETIC RESONANCE IMAGING BRAIN ABNORMAL [None]
  - VASCULITIS [None]
  - VISUAL DISTURBANCE [None]
